FAERS Safety Report 8464918-5 (Version None)
Quarter: 2012Q2

REPORT INFORMATION
  Report Type: 
  Country: None (occurrence: None)
  Receive Date: 20120323
  Receipt Date: 20110926
  Transmission Date: 20120825
  Serious: Yes (Hospitalization)
  Sender: FDA-Public Use
  Company Number: 163-21880-11093468

PATIENT
  Age: 80 Year
  Sex: Male

DRUGS (13)
  1. LENALIDOMIDE [Suspect]
     Indication: ACUTE MYELOID LEUKAEMIA
     Dosage: 10 MG, FOR 28 DAYS, PO
     Route: 048
     Dates: start: 20110801
  2. DIFLUCAN [Concomitant]
  3. MULTIVITAMIN [Concomitant]
  4. UROXATRAL [Concomitant]
  5. VITAMIN B12 [Concomitant]
  6. VITAMIN D [Concomitant]
  7. LEVAQUIN [Concomitant]
  8. NORVASC [Concomitant]
  9. OMEPRAZOLE [Concomitant]
  10. RESTORIL [Concomitant]
  11. MIRALAX [Concomitant]
  12. ACYCLOVIR [Concomitant]
  13. COLACE (DOCUSATE SODIUM) [Concomitant]

REACTIONS (1)
  - PYREXIA [None]
